FAERS Safety Report 7487159-7 (Version None)
Quarter: 2011Q2

REPORT INFORMATION
  Report Type: 
  Country: None (occurrence: None)
  Receive Date: 20110510
  Receipt Date: 20110504
  Transmission Date: 20111010
  Serious: Yes (Other)
  Sender: FDA-Public Use
  Company Number: 201110257

PATIENT
  Sex: Female

DRUGS (1)
  1. LIORESAL [Suspect]
     Indication: MUSCLE SPASTICITY
     Dosage: DAILY. INTRATHECAL
     Route: 039

REACTIONS (6)
  - DEVICE RELATED INFECTION [None]
  - POCKET EROSION [None]
  - DEVICE EXTRUSION [None]
  - IMPLANT SITE INFLAMMATION [None]
  - SUTURE RUPTURE [None]
  - DRY GANGRENE [None]
